FAERS Safety Report 7135964 (Version 2)
Quarter: 2012Q4

REPORT INFORMATION
  Report Type: 
  Country: US (occurrence: US)
  Receive Date: 20091001
  Receipt Date: 20121212
  Transmission Date: 20130627
  Serious: Yes (Hospitalization, Other)
  Sender: FDA-Public Use
  Company Number: US-ELI_LILLY_AND_COMPANY-US200909006031

PATIENT
  Age: 70 Year
  Sex: Male

DRUGS (3)
  1. HUMALOG 25% LISPRO, 75% NPL [Suspect]
  2. HUMALOG LISPRO [Suspect]
     Indication: DIABETES MELLITUS
     Dosage: UNK, unknown
  3. BETA BLOCKING AGENTS [Concomitant]

REACTIONS (8)
  - Hypoglycaemic unconsciousness [Unknown]
  - Myocardial infarction [Unknown]
  - Shock hypoglycaemic [Unknown]
  - Hospitalisation [Unknown]
  - Blood glucose decreased [Unknown]
  - Blood glucose fluctuation [Unknown]
  - Fall [Unknown]
  - Foaming at mouth [Unknown]
